FAERS Safety Report 25083985 (Version 1)
Quarter: 2025Q1

REPORT INFORMATION
  Report Type: Spontaneous
  Country: US (occurrence: None)
  Receive Date: 20250314
  Receipt Date: 20250314
  Transmission Date: 20250408
  Serious: Yes (Hospitalization)
  Sender: FDA-CTU
  Company Number: None

PATIENT
  Sex: Male

DRUGS (11)
  1. ONUREG [Suspect]
     Active Substance: AZACITIDINE
     Indication: Myeloid leukaemia
     Route: 048
     Dates: start: 202405
  2. ONUREG [Suspect]
     Active Substance: AZACITIDINE
     Indication: Nausea
  3. ONUREG [Suspect]
     Active Substance: AZACITIDINE
     Indication: Vomiting
  4. XOSPATA [Suspect]
     Active Substance: GILTERITINIB
     Indication: Nausea
  5. XOSPATA [Suspect]
     Active Substance: GILTERITINIB
     Indication: Vomiting
  6. XOSPATA [Suspect]
     Active Substance: GILTERITINIB
     Indication: Myeloid leukaemia
  7. INQOVI [Suspect]
     Active Substance: CEDAZURIDINE\DECITABINE
     Indication: Nausea
  8. INQOVI [Suspect]
     Active Substance: CEDAZURIDINE\DECITABINE
     Indication: Vomiting
  9. INQOVI [Suspect]
     Active Substance: CEDAZURIDINE\DECITABINE
     Indication: Myeloid leukaemia
  10. XOSPATA [Concomitant]
     Active Substance: GILTERITINIB
  11. INQOVI [Concomitant]
     Active Substance: CEDAZURIDINE\DECITABINE

REACTIONS (1)
  - Mouth haemorrhage [None]
